FAERS Safety Report 24106774 (Version 1)
Quarter: 2024Q3

REPORT INFORMATION
  Report Type: Spontaneous
  Country: IT (occurrence: IT)
  Receive Date: 20240717
  Receipt Date: 20240717
  Transmission Date: 20241017
  Serious: Yes (Other)
  Sender: GILEAD
  Company Number: IT-GILEAD-2024-0680868

PATIENT
  Age: 78 Year
  Sex: Female

DRUGS (1)
  1. ZYDELIG [Suspect]
     Active Substance: IDELALISIB
     Indication: Follicular lymphoma
     Dosage: 150 MG
     Route: 065

REACTIONS (2)
  - Myelosuppression [Unknown]
  - Febrile neutropenia [Unknown]
